FAERS Safety Report 20453618 (Version 1)
Quarter: 2022Q1

REPORT INFORMATION
  Report Type: Report from Study
  Country: FR (occurrence: FR)
  Receive Date: 20220210
  Receipt Date: 20220210
  Transmission Date: 20220423
  Serious: Yes (Hospitalization)
  Sender: FDA-Public Use
  Company Number: FR-SERVIER-S22000841

PATIENT

DRUGS (8)
  1. PEGASPARGASE [Suspect]
     Active Substance: PEGASPARGASE
     Indication: Acute lymphocytic leukaemia
     Dosage: 2875 IU, D15, D43
     Route: 042
     Dates: start: 20211109, end: 20211215
  2. VINCRISTINE SULFATE [Suspect]
     Active Substance: VINCRISTINE SULFATE
     Indication: Acute lymphocytic leukaemia
     Dosage: 1.6 MG, D15, D22, D43, D50
     Route: 042
     Dates: start: 20211109, end: 20211222
  3. TN UNSPECIFIED [Concomitant]
     Indication: Acute lymphocytic leukaemia
     Dosage: 1160 MG, D1, D29
     Route: 042
     Dates: start: 20211022, end: 20211129
  4. TN UNSPECIFIED [Concomitant]
     Indication: Acute lymphocytic leukaemia
     Dosage: 68 MG, D1-D14, D29-D42
     Route: 048
     Dates: start: 20211022, end: 20211212
  5. TN UNSPECIFIED [Concomitant]
     Indication: Acute lymphocytic leukaemia
     Dosage: 80 MG, D3-D6, D10-D13, D31-D34
     Route: 042
     Dates: start: 20211025, end: 20211210
  6. TN UNSPECIFIED [Concomitant]
     Dosage: 30 MG
     Route: 037
     Dates: start: 20211027, end: 20211130
  7. TN UNSPECIFIED [Concomitant]
     Indication: Acute lymphocytic leukaemia
     Dosage: 15 MG
     Route: 037
     Dates: start: 20211027, end: 20211130
  8. TN UNSPECIFIED [Concomitant]
     Indication: Acute lymphocytic leukaemia
     Dosage: 12 MG
     Route: 037
     Dates: start: 20211027, end: 20211130

REACTIONS (2)
  - COVID-19 [Recovering/Resolving]
  - Staphylococcal sepsis [Not Recovered/Not Resolved]

NARRATIVE: CASE EVENT DATE: 20220122
